FAERS Safety Report 7138302-0 (Version None)
Quarter: 2010Q4

REPORT INFORMATION
  Report Type: 
  Country: None (occurrence: None)
  Receive Date: 20101202
  Receipt Date: 20101202
  Transmission Date: 20110411
  Serious: Yes (Death)
  Sender: FDA-Public Use
  Company Number: None

PATIENT
  Age: 71 Year
  Sex: Male
  Weight: 76.8 kg

DRUGS (9)
  1. TEMOZOLOMIDE [Suspect]
     Indication: GLIOBLASTOMA
     Dosage: 150MG/M2 PO QD
     Route: 048
     Dates: start: 20091213, end: 20100306
  2. ZACTIMA (ZD6474) [Suspect]
     Indication: GLIOBLASTOMA
     Dosage: 100MG PO QD
     Route: 048
     Dates: start: 20091208, end: 20100322
  3. CALCIUM [Concomitant]
  4. VITAMIN D [Concomitant]
  5. DECADRON [Concomitant]
  6. KEPPRA [Concomitant]
  7. MEPRON [Concomitant]
  8. REGLAN [Concomitant]
  9. PROPRANOLOL [Concomitant]

REACTIONS (5)
  - GAIT DISTURBANCE [None]
  - LETHARGY [None]
  - LOSS OF CONSCIOUSNESS [None]
  - PULMONARY EMBOLISM [None]
  - PULMONARY INFARCTION [None]
